FAERS Safety Report 23350611 (Version 1)
Quarter: 2023Q4

REPORT INFORMATION
  Report Type: Spontaneous
  Country: JP (occurrence: JP)
  Receive Date: 20231229
  Receipt Date: 20231229
  Transmission Date: 20240109
  Serious: Yes (Hospitalization)
  Sender: FDA-Public Use
  Company Number: JP-AMGEN-JPNSP2023230975

PATIENT
  Age: 84 Year
  Sex: Male

DRUGS (1)
  1. EVENITY [Suspect]
     Active Substance: ROMOSOZUMAB-AQQG
     Indication: Product used for unknown indication
     Dosage: 210 MILLIGRAM
     Route: 058

REACTIONS (3)
  - Swelling face [Recovered/Resolved]
  - Peripheral swelling [Recovered/Resolved]
  - Erythema [Recovered/Resolved]
